FAERS Safety Report 12452909 (Version 1)
Quarter: 2016Q2

REPORT INFORMATION
  Report Type: Spontaneous
  Country: US (occurrence: US)
  Receive Date: 20160609
  Receipt Date: 20160609
  Transmission Date: 20160815
  Serious: Yes (Other)
  Sender: FDA-Public Use
  Company Number: US-BIOGEN-2016BI00247830

PATIENT
  Sex: Female

DRUGS (2)
  1. AVONEX [Suspect]
     Active Substance: INTERFERON BETA-1A
     Indication: MULTIPLE SCLEROSIS
     Route: 065
  2. TECFIDERA [Suspect]
     Active Substance: DIMETHYL FUMARATE
     Indication: MULTIPLE SCLEROSIS
     Route: 065
     Dates: start: 20151124

REACTIONS (6)
  - Ileostomy [Recovered/Resolved]
  - Colostomy [Recovered/Resolved]
  - Constipation [Recovered/Resolved]
  - Automatic bladder [Recovered/Resolved]
  - Colostomy closure [Recovered/Resolved]
  - Ileostomy closure [Recovered/Resolved]
